APPROVED DRUG PRODUCT: AMLODIPINE BESYLATE AND ATORVASTATIN CALCIUM
Active Ingredient: AMLODIPINE BESYLATE; ATORVASTATIN CALCIUM
Strength: EQ 10MG BASE;EQ 10MG BASE
Dosage Form/Route: TABLET;ORAL
Application: A205199 | Product #005 | TE Code: AB
Applicant: APOTEX INC
Approved: Nov 18, 2019 | RLD: No | RS: No | Type: RX